FAERS Safety Report 12346683 (Version 1)
Quarter: 2016Q2

REPORT INFORMATION
  Report Type: Report from Study
  Country: BE (occurrence: BE)
  Receive Date: 20160509
  Receipt Date: 20160509
  Transmission Date: 20160815
  Serious: Yes (Hospitalization)
  Sender: FDA-Public Use
  Company Number: BE-BAYER-2016-084495

PATIENT
  Sex: Male

DRUGS (1)
  1. STIVARGA [Suspect]
     Active Substance: REGORAFENIB
     Dosage: 120 MG, QD
     Route: 048
     Dates: start: 20160419

REACTIONS (6)
  - Fatigue [None]
  - Vomiting [None]
  - Urine odour abnormal [None]
  - Urine analysis abnormal [None]
  - Decreased appetite [None]
  - Nausea [None]
